FAERS Safety Report 16535392 (Version 1)
Quarter: 2019Q3

REPORT INFORMATION
  Report Type: Report from Study
  Country: IT (occurrence: IT)
  Receive Date: 20190705
  Receipt Date: 20190705
  Transmission Date: 20191004
  Serious: Yes (Other)
  Sender: FDA-Public Use
  Company Number: IT-TEVA-2019-IT-1073497

PATIENT
  Age: 66 Year
  Sex: Male
  Weight: 51 kg

DRUGS (1)
  1. FLUOROURACIL. [Suspect]
     Active Substance: FLUOROURACIL
     Indication: ADENOCARCINOMA PANCREAS
     Route: 042

REACTIONS (1)
  - Extravasation [Recovering/Resolving]

NARRATIVE: CASE EVENT DATE: 20181209
